FAERS Safety Report 6584621-6 (Version None)
Quarter: 2010Q1

REPORT INFORMATION
  Report Type: 
  Country: None (occurrence: None)
  Receive Date: 20100213
  Receipt Date: 20100213
  Transmission Date: 20100710
  Serious: Yes (Life-Threatening, Hospitalization, Other)
  Sender: FDA-Public Use
  Company Number: None

PATIENT

DRUGS (2)
  1. SEROQUEL [Suspect]
     Indication: DEPRESSION
  2. SEROQUEL [Suspect]
     Indication: INSOMNIA

REACTIONS (3)
  - ECONOMIC PROBLEM [None]
  - IMPAIRED WORK ABILITY [None]
  - PANCREATITIS ACUTE [None]
